FAERS Safety Report 11212316 (Version 2)
Quarter: 2015Q2

REPORT INFORMATION
  Report Type: Spontaneous
  Country: US (occurrence: US)
  Receive Date: 20150623
  Receipt Date: 20150626
  Transmission Date: 20150821
  Serious: Yes (Other)
  Sender: FDA-Public Use
  Company Number: US-PFIZER INC-2015205605

PATIENT
  Age: 82 Year
  Sex: Female
  Weight: 64 kg

DRUGS (1)
  1. NEURONTIN [Suspect]
     Active Substance: GABAPENTIN
     Indication: NEUROPATHY PERIPHERAL
     Dosage: 700 MG, DAILY FOR TEN YEARS

REACTIONS (4)
  - Drug ineffective for unapproved indication [Recovering/Resolving]
  - Drug tolerance decreased [Unknown]
  - Loss of consciousness [Recovering/Resolving]
  - Fall [Recovering/Resolving]
